FAERS Safety Report 6009131-6 (Version None)
Quarter: 2008Q4

REPORT INFORMATION
  Report Type: 
  Country: None (occurrence: None)
  Receive Date: 20081216
  Receipt Date: 20081204
  Transmission Date: 20090506
  Serious: No
  Sender: FDA-Public Use
  Company Number: 2008-187145-NL

PATIENT
  Age: 35 Year
  Sex: Female

DRUGS (7)
  1. MIRTAZAPINE [Suspect]
     Indication: DEPRESSION
     Dosage: 30 MG
     Dates: start: 20081006, end: 20081009
  2. MIRTAZAPINE [Suspect]
     Indication: SLEEP DISORDER
     Dosage: 30 MG
     Dates: start: 20081006, end: 20081009
  3. VENLAFAXINE HYDROCHLORIDE [Suspect]
     Indication: DEPRESSION
     Dosage: 150 MG
     Dates: start: 20080910
  4. BROMAZEPAM [Suspect]
     Dosage: 1 DF
     Dates: start: 20080901, end: 20080101
  5. DESLORATADINE [Concomitant]
  6. MOMETASONE FUROATE [Concomitant]
  7. BIPERIDEN HYDROCHLORIDE TAB [Concomitant]

REACTIONS (3)
  - DEPRESSION [None]
  - PARKINSONISM [None]
  - SLEEP DISORDER [None]
